FAERS Safety Report 8741450 (Version 2)
Quarter: 2012Q4

REPORT INFORMATION
  Report Type: 
  Country: US (occurrence: US)
  Receive Date: 20120824
  Receipt Date: 20121105
  Transmission Date: 20130627
  Serious: No
  Sender: FDA-Public Use
  Company Number: US-ASTRAZENECA-2012SE05655

PATIENT
  Age: 40 Year
  Sex: Female

DRUGS (2)
  1. SYMBICORT PMDI [Suspect]
     Route: 055
  2. ALBUTEROL [Concomitant]

REACTIONS (6)
  - Wheezing [Unknown]
  - Dyspnoea [Unknown]
  - Chest discomfort [Unknown]
  - Nasopharyngitis [Unknown]
  - Intentional drug misuse [Unknown]
  - Drug dose omission [Unknown]
